FAERS Safety Report 20543353 (Version 7)
Quarter: 2022Q1

REPORT INFORMATION
  Report Type: Spontaneous
  Country: US (occurrence: US)
  Receive Date: 20220302
  Receipt Date: 20220331
  Transmission Date: 20220423
  Serious: No
  Sender: FDA-Public Use
  Company Number: US-ELI_LILLY_AND_COMPANY-US202203001207

PATIENT
  Sex: Female

DRUGS (2)
  1. ADCIRCA [Suspect]
     Active Substance: TADALAFIL
     Indication: Pulmonary arterial hypertension
     Dosage: 40 MG, DAILY
     Route: 048
     Dates: start: 20191113
  2. TYVASO [Suspect]
     Active Substance: TREPROSTINIL
     Indication: Pulmonary arterial hypertension
     Dosage: UNK UNK, QID (3 BREATHS)
     Route: 055
     Dates: start: 20220211, end: 202203

REACTIONS (12)
  - Breath holding [Unknown]
  - Mucosal disorder [Unknown]
  - Cough [Unknown]
  - Heart rate abnormal [Unknown]
  - Oral pain [Unknown]
  - Mental status changes [Unknown]
  - General physical condition abnormal [Unknown]
  - Blood pressure increased [Unknown]
  - Chest discomfort [Unknown]
  - Diarrhoea [Unknown]
  - Chest pain [Unknown]
  - Dyspnoea [Unknown]
